FAERS Safety Report 24217999 (Version 5)
Quarter: 2024Q3

REPORT INFORMATION
  Report Type: Spontaneous
  Country: DE (occurrence: DE)
  Receive Date: 20240816
  Receipt Date: 20240926
  Transmission Date: 20241016
  Serious: Yes (Hospitalization)
  Sender: CHIESI
  Company Number: DE-CHIESI-2024CHF05069

PATIENT
  Age: 0 Year
  Sex: Female
  Weight: 1 kg

DRUGS (1)
  1. CUROSURF [Suspect]
     Active Substance: PORACTANT ALFA
     Indication: Neonatal respiratory distress syndrome
     Dosage: 240 MILLIGRAM, (1X)
     Route: 007
     Dates: start: 20240808, end: 20240808

REACTIONS (5)
  - Neonatal respiratory failure [Recovered/Resolved]
  - Pulmonary haemorrhage neonatal [Recovered/Resolved]
  - Prescribed overdose [Recovered/Resolved]
  - Off label use [Recovered/Resolved]
  - Product complaint [Recovered/Resolved]

NARRATIVE: CASE EVENT DATE: 20240808
